FAERS Safety Report 19551650 (Version 2)
Quarter: 2021Q3

REPORT INFORMATION
  Report Type: Spontaneous
  Country: FR (occurrence: FR)
  Receive Date: 20210715
  Receipt Date: 20210803
  Transmission Date: 20211014
  Serious: Yes (Hospitalization, Other)
  Sender: FDA-Public Use
  Company Number: FR-CELLTRION INC.-2021FR005076

PATIENT

DRUGS (16)
  1. TRASTUZUMAB (UNKNOWN) [Suspect]
     Active Substance: TRASTUZUMAB
     Indication: TARGETED CANCER THERAPY
     Dosage: UNK UNK, CYCLE RECEIVED 7 CYCLES FOLLOWED BY MAINTENANCE; PHASE
     Route: 065
  2. EVEROLIMUS. [Suspect]
     Active Substance: EVEROLIMUS
     Indication: BREAST CANCER METASTATIC
     Dosage: UNK, CYCLE RECEIVED 7 CYCLES FOLLOWED BY MAINTENANCE/ 7 CYCLES
     Route: 065
  3. CYCLOPHOSPHAMIDE. [Concomitant]
     Active Substance: CYCLOPHOSPHAMIDE
     Indication: ADJUVANT THERAPY
  4. EVEROLIMUS. [Suspect]
     Active Substance: EVEROLIMUS
     Indication: CHEMOTHERAPY
  5. PACLITAXEL. [Concomitant]
     Active Substance: PACLITAXEL
     Indication: BREAST CANCER METASTATIC
     Dosage: 7 CYCLES
     Route: 065
  6. PACLITAXEL. [Concomitant]
     Active Substance: PACLITAXEL
     Indication: CHEMOTHERAPY
  7. EPIRUBICIN [Concomitant]
     Active Substance: EPIRUBICIN
     Indication: ADJUVANT THERAPY
  8. FLUOROURACIL. [Concomitant]
     Active Substance: FLUOROURACIL
     Indication: ADJUVANT THERAPY
  9. TRASTUZUMAB (UNKNOWN) [Suspect]
     Active Substance: TRASTUZUMAB
     Indication: BREAST CANCER METASTATIC
     Dosage: UNK UNK, CYCLE ALONG WITH FEC100 REGIMEN FOR OVER 1 YEAR
     Route: 065
  10. TRASTUZUMAB (UNKNOWN) [Suspect]
     Active Substance: TRASTUZUMAB
     Indication: CHEMOTHERAPY
  11. TN UNSPECIFIED [Concomitant]
     Indication: BREAST CANCER
     Dosage: UNK
     Route: 065
  12. TRASTUZUMAB (UNKNOWN) [Suspect]
     Active Substance: TRASTUZUMAB
     Indication: BREAST CANCER
     Dosage: 7 CYCLES
  13. EVEROLIMUS. [Suspect]
     Active Substance: EVEROLIMUS
     Indication: INVASIVE DUCTAL BREAST CARCINOMA
  14. PACLITAXEL. [Concomitant]
     Active Substance: PACLITAXEL
     Indication: BREAST CANCER
  15. TRASTUZUMAB (UNKNOWN) [Suspect]
     Active Substance: TRASTUZUMAB
     Indication: INVASIVE DUCTAL BREAST CARCINOMA
  16. EVEROLIMUS. [Suspect]
     Active Substance: EVEROLIMUS
     Indication: BREAST CANCER

REACTIONS (6)
  - Condition aggravated [Unknown]
  - Splenic lesion [Recovered/Resolved with Sequelae]
  - Therapeutic response unexpected [Unknown]
  - Left ventricular dysfunction [Unknown]
  - Rebound effect [Recovered/Resolved with Sequelae]
  - Endometriosis [Recovered/Resolved with Sequelae]
